FAERS Safety Report 6187949-7 (Version None)
Quarter: 2009Q2

REPORT INFORMATION
  Report Type: 
  Country: None (occurrence: None)
  Receive Date: 20090511
  Receipt Date: 20090511
  Transmission Date: 20091009
  Serious: Yes (Other)
  Sender: FDA-Public Use
  Company Number: None

PATIENT
  Sex: Male
  Weight: 124.7392 kg

DRUGS (1)
  1. DEFINITY [Suspect]
     Indication: CARDIAC STRESS TEST
     Dosage: DEFINITY 0.3MG X 1 IVP
     Route: 042
     Dates: start: 20090319

REACTIONS (9)
  - ASTHENIA [None]
  - BACK PAIN [None]
  - BLINDNESS TRANSIENT [None]
  - CHEST PAIN [None]
  - DEAFNESS TRANSITORY [None]
  - HEADACHE [None]
  - HYPERTENSION [None]
  - NAUSEA [None]
  - NECK PAIN [None]
